FAERS Safety Report 26143112 (Version 1)
Quarter: 2025Q4

REPORT INFORMATION
  Report Type: Spontaneous
  Country: US (occurrence: US)
  Receive Date: 20251211
  Receipt Date: 20251211
  Transmission Date: 20260117
  Serious: No
  Sender: ALVOGEN
  Company Number: US-ALVOGEN-2025097788

PATIENT
  Sex: Female

DRUGS (2)
  1. LEVOTHYROXINE [Suspect]
     Active Substance: LEVOTHYROXINE
     Indication: Thyroid disorder
     Dosage: MORE THAN 2 YEARS AGO
  2. LEVOTHYROXINE [Suspect]
     Active Substance: LEVOTHYROXINE
     Indication: Thyroid disorder

REACTIONS (2)
  - Sluggishness [Recovering/Resolving]
  - Headache [Recovering/Resolving]
